FAERS Safety Report 8800108 (Version 1)
Quarter: 2012Q4

REPORT INFORMATION
  Report Type: 
  Country: US (occurrence: US)
  Receive Date: 20120921
  Receipt Date: 20120921
  Transmission Date: 20130627
  Serious: Yes (Other)
  Sender: FDA-Public Use
  Company Number: PHEH2012US018274

PATIENT
  Sex: Female

DRUGS (2)
  1. TRILEPTAL [Suspect]
  2. TRILEPTAL [Suspect]
     Dosage: 900 mg, BID

REACTIONS (1)
  - Convulsion [Unknown]
